FAERS Safety Report 9630204 (Version 2)
Quarter: 2013Q4

REPORT INFORMATION
  Report Type: Spontaneous
  Country: US (occurrence: US)
  Receive Date: 20131017
  Receipt Date: 20131122
  Transmission Date: 20140711
  Serious: Yes (Other)
  Sender: FDA-Public Use
  Company Number: CHPA2013US015638

PATIENT
  Sex: Female

DRUGS (1)
  1. VOLTAREN GEL [Suspect]
     Indication: ARTHRITIS
     Dosage: 4 G, QID
     Route: 061
     Dates: start: 2012, end: 2012

REACTIONS (3)
  - Rotator cuff syndrome [Unknown]
  - Fall [Unknown]
  - Musculoskeletal discomfort [Unknown]
